FAERS Safety Report 19971594 (Version 3)
Quarter: 2023Q2

REPORT INFORMATION
  Report Type: Spontaneous
  Country: US (occurrence: US)
  Receive Date: 20211019
  Receipt Date: 20230601
  Transmission Date: 20230722
  Serious: No
  Sender: FDA-Public Use
  Company Number: US-PFIZER INC-2021476591

PATIENT
  Age: 76 Year

DRUGS (2)
  1. PREMARIN [Suspect]
     Active Substance: ESTROGENS, CONJUGATED
     Indication: Oestrogen replacement therapy
     Dosage: UNK
  2. PREMARIN [Suspect]
     Active Substance: ESTROGENS, CONJUGATED
     Indication: Osteoporosis

REACTIONS (3)
  - Intentional dose omission [Unknown]
  - Periarthritis [Unknown]
  - Drug effective for unapproved indication [Unknown]
